FAERS Safety Report 12888045 (Version 1)
Quarter: 2016Q4

REPORT INFORMATION
  Report Type: Report from Study
  Country: FR (occurrence: FR)
  Receive Date: 20161027
  Receipt Date: 20161027
  Transmission Date: 20170207
  Serious: Yes (Death, Hospitalization)
  Sender: FDA-Public Use
  Company Number: FR-ROCHE-1846189

PATIENT
  Sex: Female

DRUGS (5)
  1. CORTANCYL [Concomitant]
     Active Substance: PREDNISONE
     Route: 065
  2. MABTHERA [Suspect]
     Active Substance: RITUXIMAB
     Indication: RHEUMATOID ARTHRITIS
     Dosage: D1?ON 31/OCT/2016: D15
     Route: 041
     Dates: start: 20071015
  3. METHOTREXATE. [Concomitant]
     Active Substance: METHOTREXATE
     Route: 065
  4. MABTHERA [Suspect]
     Active Substance: RITUXIMAB
     Dosage: D1?1 G (D15) ON 29/DEC/2008.
     Route: 041
     Dates: start: 20081215
  5. LEFLUNOMIDE. [Concomitant]
     Active Substance: LEFLUNOMIDE
     Route: 065
     Dates: start: 201104

REACTIONS (9)
  - Spinal compression fracture [Recovered/Resolved]
  - Sciatica [Recovered/Resolved]
  - Pericarditis [Recovered/Resolved]
  - Vertigo [Recovered/Resolved]
  - Serum sickness [Recovered/Resolved]
  - Stress fracture [Unknown]
  - Cataract [Recovered/Resolved]
  - Palpitations [Recovered/Resolved]
  - Bronchial carcinoma [Fatal]

NARRATIVE: CASE EVENT DATE: 20071112
